FAERS Safety Report 7047061-1 (Version None)
Quarter: 2010Q4

REPORT INFORMATION
  Report Type: 
  Country: None (occurrence: None)
  Receive Date: 20101015
  Receipt Date: 20101008
  Transmission Date: 20110411
  Serious: Yes (Other)
  Sender: FDA-Public Use
  Company Number: US-CELGENEUS-163-20785-10100741

PATIENT
  Age: 64 Year
  Sex: Female

DRUGS (4)
  1. THALOMID [Suspect]
     Indication: AMYLOIDOMA
     Route: 048
  2. DEXAMETHASONE [Suspect]
     Indication: AMYLOIDOMA
     Route: 065
  3. VALPROATE SODIUM [Concomitant]
     Route: 065
  4. MELPHALAN HYDROCHLORIDE [Concomitant]
     Indication: PRODUCT USED FOR UNKNOWN INDICATION
     Route: 048

REACTIONS (2)
  - DISEASE PROGRESSION [None]
  - MYOPATHY [None]
